FAERS Safety Report 8969288 (Version 2)
Quarter: 2013Q2

REPORT INFORMATION
  Report Type: Spontaneous
  Country: US (occurrence: None)
  Receive Date: 20121210
  Receipt Date: 20130415
  Transmission Date: 20140414
  Serious: Yes (Hospitalization, Other)
  Sender: FDA-Public Use
  Company Number: HRA-CDB20120219

PATIENT
  Age: 19 Year
  Sex: Female

DRUGS (3)
  1. ELLA [Suspect]
     Indication: POST COITAL CONTRACEPTION
     Dosage: 30 MG (30 MG, 1 IN 1D)
     Dates: start: 20120604, end: 20120604
  2. LO OVRAL (NORGESTREL, ETHINYL ESTRADIOL) [Concomitant]
  3. BC-CRYSELLE (NORGESTREL, ETHINYL ESTRADIOL) [Concomitant]

REACTIONS (5)
  - Unintended pregnancy [None]
  - Abortion spontaneous [None]
  - Chlamydial infection [None]
  - Nausea [None]
  - Abdominal pain upper [None]
